FAERS Safety Report 9146048 (Version 1)
Quarter: 2013Q1

REPORT INFORMATION
  Report Type: Spontaneous
  Country: US (occurrence: None)
  Receive Date: 20130131
  Receipt Date: 20130131
  Transmission Date: 20140127
  Serious: Yes (Death)
  Sender: FDA-Public Use
  Company Number: B0863078A

PATIENT
  Age: 53 Year
  Sex: Male

DRUGS (1)
  1. EPOPROSTENOL SODIUM [Suspect]
     Indication: PORTOPULMONARY HYPERTENSION
     Dosage: INFUSION
     Route: 042

REACTIONS (7)
  - Hypersplenism [None]
  - Ascites [None]
  - Pancytopenia [None]
  - Erythropoiesis abnormal [None]
  - Liver transplant [None]
  - Blood iron decreased [None]
  - Shock haemorrhagic [None]
